FAERS Safety Report 8246419-2 (Version None)
Quarter: 2012Q1

REPORT INFORMATION
  Report Type: 
  Country: None (occurrence: None)
  Receive Date: 20120330
  Receipt Date: 20120323
  Transmission Date: 20120608
  Serious: Yes (Other)
  Sender: FDA-Public Use
  Company Number: US-GENZYME-CERZ-1002446

PATIENT
  Sex: Male
  Weight: 2.555 kg

DRUGS (1)
  1. CEREZYME [Suspect]
     Indication: GAUCHER'S DISEASE
     Dosage: UNK NA, UNK
     Route: 042

REACTIONS (5)
  - PREAURICULAR CYST [None]
  - MELANOCYTIC NAEVUS [None]
  - PILONIDAL CYST CONGENITAL [None]
  - SKELETON DYSPLASIA [None]
  - BODY HEIGHT BELOW NORMAL [None]
